FAERS Safety Report 5641511-0 (Version None)
Quarter: 2008Q1

REPORT INFORMATION
  Report Type: 
  Country: None (occurrence: None)
  Receive Date: 20080227
  Receipt Date: 20071010
  Transmission Date: 20080703
  Serious: No
  Sender: FDA-Public Use
  Company Number: A0686825A

PATIENT
  Age: 49 Year
  Sex: Female

DRUGS (2)
  1. NICORETTE (MINT) [Suspect]
     Dates: start: 20071001, end: 20071003
  2. NICODERM CQ [Suspect]

REACTIONS (5)
  - APPLICATION SITE URTICARIA [None]
  - HYPERSENSITIVITY [None]
  - MOUTH ULCERATION [None]
  - PARAESTHESIA ORAL [None]
  - STOMATITIS [None]
